FAERS Safety Report 15863276 (Version 1)
Quarter: 2019Q1

REPORT INFORMATION
  Report Type: Spontaneous
  Country: GB (occurrence: GB)
  Receive Date: 20190124
  Receipt Date: 20190124
  Transmission Date: 20190417
  Serious: Yes (Hospitalization)
  Sender: FDA-Public Use
  Company Number: GB-MYLANLABS-2019M1006236

PATIENT
  Age: 85 Year
  Sex: Female

DRUGS (5)
  1. TEICOPLANIN [Suspect]
     Active Substance: TEICOPLANIN
     Indication: PNEUMONIA
     Dosage: 1600 MILLIGRAM
     Route: 042
     Dates: start: 20180107
  2. METRONIDAZOLE. [Suspect]
     Active Substance: METRONIDAZOLE
     Indication: PNEUMONIA
     Dosage: 1200 MILLIGRAM, QD
     Route: 048
     Dates: start: 20180107, end: 20180108
  3. CLARITHROMYCIN. [Suspect]
     Active Substance: CLARITHROMYCIN
     Indication: PNEUMONIA
     Dosage: 1000 MILLIGRAM, QD
     Route: 048
     Dates: start: 20180108, end: 20180114
  4. COCODAMOL [Concomitant]
     Active Substance: ACETAMINOPHEN\CODEINE PHOSPHATE
     Dosage: UNK (8/500MG 1-2 FOUR TIMES DAILY AS NECESSARY)
  5. AMOXICILLIN. [Suspect]
     Active Substance: AMOXICILLIN
     Indication: PNEUMONIA
     Dosage: 1500 MILLIGRAM, QD
     Route: 048
     Dates: start: 20180108, end: 20180114

REACTIONS (4)
  - Hypersensitivity [Unknown]
  - Erythema [Unknown]
  - Rash macular [Recovered/Resolved]
  - Pruritus [Unknown]

NARRATIVE: CASE EVENT DATE: 20180125
